FAERS Safety Report 4776230-6 (Version None)
Quarter: 2005Q3

REPORT INFORMATION
  Report Type: 
  Country: None (occurrence: None)
  Receive Date: 20050922
  Receipt Date: 20050919
  Transmission Date: 20060218
  Serious: Yes (Other)
  Sender: FDA-Public Use
  Company Number: US-JNJFOC-20050904545

PATIENT
  Sex: Female

DRUGS (2)
  1. MONISTAT 3 COMBINATION PACK [Suspect]
     Dosage: SUPPOSITORY
     Route: 067
  2. MONISTAT 3 COMBINATION PACK [Suspect]
     Dosage: 2% CREAM
     Route: 061

REACTIONS (2)
  - ABORTION SPONTANEOUS [None]
  - DRUG EXPOSURE DURING PREGNANCY [None]
